FAERS Safety Report 17216325 (Version 1)
Quarter: 2019Q4

REPORT INFORMATION
  Report Type: Report from Study
  Country: US (occurrence: US)
  Receive Date: 20191230
  Receipt Date: 20191230
  Transmission Date: 20200122
  Serious: Yes (Other)
  Sender: FDA-Public Use
  Company Number: US-CLOVIS ONCOLOGY-CLO-2019-002523

PATIENT
  Age: 59 Year
  Sex: Male
  Weight: 68.1 kg

DRUGS (3)
  1. RUCAPARIB [Suspect]
     Active Substance: RUCAPARIB
     Dosage: 400 MG, BID
     Route: 048
     Dates: start: 20191022
  2. RUCAPARIB [Suspect]
     Active Substance: RUCAPARIB
     Dosage: 500 MG, BID
     Route: 048
     Dates: start: 20191003, end: 20191015
  3. RUCAPARIB [Suspect]
     Active Substance: RUCAPARIB
     Indication: LUNG NEOPLASM MALIGNANT
     Dosage: 600 MG, BID
     Route: 048
     Dates: start: 20190812, end: 20190926

REACTIONS (1)
  - Anaemia [Recovered/Resolved]

NARRATIVE: CASE EVENT DATE: 20190926
